FAERS Safety Report 7322479-8 (Version None)
Quarter: 2011Q1

REPORT INFORMATION
  Report Type: 
  Country: None (occurrence: None)
  Receive Date: 20110125
  Receipt Date: 20101202
  Transmission Date: 20110831
  Serious: No
  Sender: FDA-Public Use
  Company Number: US-004305

PATIENT
  Age: 84 Year
  Sex: Male
  Weight: 68.0396 kg

DRUGS (1)
  1. FIRMAGON [Suspect]
     Indication: PROSTATE CANCER
     Dosage: (240 MG RECEIVED 240MG FIRMAGON IN TWO INJECTIONS IN ABDOMEN SUBCUTANEOUS)
     Route: 058
     Dates: start: 20101201, end: 20101201

REACTIONS (2)
  - ABDOMINAL TENDERNESS [None]
  - ABDOMINAL DISCOMFORT [None]
